FAERS Safety Report 4280111-4 (Version None)
Quarter: 2004Q1

REPORT INFORMATION
  Report Type: 
  Country: None (occurrence: None)
  Receive Date: 20040126
  Receipt Date: 20040112
  Transmission Date: 20041129
  Serious: Yes (Death)
  Sender: FDA-Public Use
  Company Number: CERZ-10492

PATIENT
  Sex: Male
  Weight: 60 kg

DRUGS (1)
  1. CEREZYME [Suspect]
     Indication: GAUCHER'S DISEASE
     Dosage: 3600 UNITS Q2WKS IV
     Route: 042
     Dates: start: 20000101

REACTIONS (3)
  - LEG AMPUTATION [None]
  - LOCALISED INFECTION [None]
  - SEPSIS [None]
